FAERS Safety Report 6974488-6 (Version None)
Quarter: 2010Q3

REPORT INFORMATION
  Report Type: 
  Country: None (occurrence: None)
  Receive Date: 20100909
  Receipt Date: 20080730
  Transmission Date: 20110219
  Serious: No
  Sender: FDA-Public Use
  Company Number: US-WYE-H05331808

PATIENT
  Age: 72 Year
  Sex: Male

DRUGS (2)
  1. PROTONIX [Suspect]
     Dosage: UNKNOWN
  2. MAALOX ANTACID/ANTIGAS MAXIMUM STRENGTH MULTI SYMPTOM [Suspect]
     Indication: DYSPEPSIA
     Dosage: 6 TSP EVERY 1 DAY;  CUMULATIVE DOSE TO EVENT: 30 TSP
     Route: 048
     Dates: start: 20080610, end: 20080614

REACTIONS (1)
  - FAECES DISCOLOURED [None]
